FAERS Safety Report 7800105-9 (Version None)
Quarter: 2011Q4

REPORT INFORMATION
  Report Type: 
  Country: None (occurrence: None)
  Receive Date: 20111006
  Receipt Date: 20111003
  Transmission Date: 20120403
  Serious: Yes (Hospitalization, Other)
  Sender: FDA-Public Use
  Company Number: CA-ABBOTT-11P-028-0860624-00

PATIENT
  Sex: Male

DRUGS (3)
  1. HUMIRA [Suspect]
     Indication: COLITIS ULCERATIVE
     Route: 058
     Dates: start: 20110120, end: 20110710
  2. IRON [Concomitant]
     Indication: MINERAL SUPPLEMENTATION
     Route: 048
  3. IMURAN [Concomitant]
     Indication: COLITIS
     Route: 048
     Dates: start: 20060101, end: 20110710

REACTIONS (2)
  - COLON CANCER [None]
  - FATIGUE [None]
